FAERS Safety Report 5279411-0 (Version None)
Quarter: 2007Q1

REPORT INFORMATION
  Report Type: 
  Country: None (occurrence: None)
  Receive Date: 20070328
  Receipt Date: 20070313
  Transmission Date: 20070707
  Serious: Yes (Congenital Anomaly, Other)
  Sender: FDA-Public Use
  Company Number: US-SHR-US-2007-010024

PATIENT
  Age: 28 Year
  Sex: Male

DRUGS (2)
  1. BETASERON [Suspect]
     Route: 058
     Dates: start: 20070131, end: 20070207
  2. BETASERON [Suspect]
     Dosage: 4 MIU, EVERY 2D
     Route: 058
     Dates: start: 20070226

REACTIONS (1)
  - FEELING ABNORMAL [None]
